FAERS Safety Report 6245905-4 (Version None)
Quarter: 2009Q2

REPORT INFORMATION
  Report Type: 
  Country: None (occurrence: None)
  Receive Date: 20090626
  Receipt Date: 20080625
  Transmission Date: 20091009
  Serious: No
  Sender: FDA-Public Use
  Company Number: A0734958A

PATIENT
  Age: 51 Year
  Sex: Female

DRUGS (9)
  1. IMITREX [Suspect]
     Indication: MIGRAINE
     Dosage: 100MCG AS REQUIRED
     Route: 048
     Dates: start: 20010101
  2. TREXIMET [Suspect]
     Indication: MIGRAINE
     Route: 048
     Dates: start: 20080616
  3. CELEBREX [Concomitant]
  4. ALEVE [Concomitant]
  5. PROZAC [Concomitant]
  6. NEXIUM [Concomitant]
  7. TAGAMET [Concomitant]
  8. CLONAZEPAM [Concomitant]
  9. ZANAFLEX [Concomitant]

REACTIONS (2)
  - DRUG INEFFECTIVE [None]
  - SOMNOLENCE [None]
